FAERS Safety Report 18967358 (Version 2)
Quarter: 2021Q2

REPORT INFORMATION
  Report Type: Other
  Country: BE (occurrence: BE)
  Receive Date: 20210303
  Receipt Date: 20210414
  Transmission Date: 20210717
  Serious: Yes (Other)
  Sender: FDA-Public Use
  Company Number: BE-CELLTRION INC.-2021BE002447

PATIENT

DRUGS (10)
  1. RITUXIMAB (UNKNOWN) [Suspect]
     Active Substance: RITUXIMAB
     Indication: LIMBIC ENCEPHALITIS
     Dosage: 500 MG (4X500 MG)
     Route: 065
     Dates: start: 201808
  2. BORTEZOMIB. [Suspect]
     Active Substance: BORTEZOMIB
     Indication: LIMBIC ENCEPHALITIS
     Dosage: 7*2.6 MG (1.3MG/M2)
     Route: 065
     Dates: start: 202005
  3. ROACTEMRA [Suspect]
     Active Substance: TOCILIZUMAB
     Indication: LIMBIC ENCEPHALITIS
     Dosage: 800 MG, Q4WE
     Route: 065
     Dates: start: 20201005
  4. PANTOPRAZOLE [Concomitant]
     Active Substance: PANTOPRAZOLE
     Dosage: 40 MG, DAILY
  5. RITUXIMAB (UNKNOWN) [Suspect]
     Active Substance: RITUXIMAB
     Dosage: 500 MG (4X500 MG)
     Route: 065
     Dates: start: 201905
  6. RITUXIMAB (UNKNOWN) [Suspect]
     Active Substance: RITUXIMAB
     Dosage: 500 MG (4X500 MG)
     Route: 065
     Dates: start: 201912
  7. LAMOTRIGINE. [Concomitant]
     Active Substance: LAMOTRIGINE
     Indication: SEIZURE
     Dosage: 100 MG (EVERY 0.5 DAY)
  8. GAMMANORM [Concomitant]
     Active Substance: HUMAN IMMUNOGLOBULIN G
     Indication: IMMUNOGLOBULINS NORMAL
     Dosage: 8.25 MG, 1/WEEK (SC 8,25G/WEEK)
     Route: 058
  9. SILDENAFIL. [Concomitant]
     Active Substance: SILDENAFIL
     Dosage: 100 MG QD
  10. SULFAMETHOXAZOLE;TRIMETHOPRIM [Concomitant]
     Active Substance: SULFAMETHOXAZOLE\TRIMETHOPRIM
     Dosage: 160/800

REACTIONS (8)
  - Intentional product use issue [Unknown]
  - B-lymphocyte count decreased [Unknown]
  - Mood altered [Unknown]
  - Limbic encephalitis [Unknown]
  - Abnormal behaviour [Unknown]
  - Cognitive disorder [Unknown]
  - Insomnia [Unknown]
  - Off label use [Unknown]
